FAERS Safety Report 8418982-X (Version None)
Quarter: 2012Q2

REPORT INFORMATION
  Report Type: 
  Country: None (occurrence: None)
  Receive Date: 20120607
  Receipt Date: 20120601
  Transmission Date: 20120825
  Serious: Yes (Other)
  Sender: FDA-Public Use
  Company Number: PHEH2012US011181

PATIENT
  Sex: Female

DRUGS (4)
  1. CARVEDILOL [Concomitant]
     Indication: BLOOD PRESSURE
     Dosage: 25 MG, DAILY
     Route: 048
  2. VALTURNA [Suspect]
     Indication: HYPERTENSION
     Dosage: 300/320 MG, DAILY
     Route: 048
  3. PROCARDIA [Concomitant]
     Indication: BLOOD PRESSURE
     Dosage: 30 MG, DAILY
     Route: 048
  4. CLONIDINE [Concomitant]
     Indication: BLOOD PRESSURE
     Dosage: 0.2 MG, DAILY
     Route: 048

REACTIONS (10)
  - ANGIOPATHY [None]
  - PAIN IN EXTREMITY [None]
  - HEADACHE [None]
  - DIZZINESS [None]
  - CONDITION AGGRAVATED [None]
  - FALL [None]
  - HYPERSOMNIA [None]
  - MUSCULOSKELETAL STIFFNESS [None]
  - MALAISE [None]
  - PAIN [None]
